FAERS Safety Report 6190388-6 (Version None)
Quarter: 2009Q2

REPORT INFORMATION
  Report Type: 
  Country: None (occurrence: None)
  Receive Date: 20090514
  Receipt Date: 20090512
  Transmission Date: 20091009
  Serious: Yes (Hospitalization)
  Sender: FDA-Public Use
  Company Number: B0572020A

PATIENT
  Age: 29 Year
  Sex: Female

DRUGS (4)
  1. KIVEXA [Suspect]
     Indication: HIV INFECTION
     Dosage: 1TAB PER DAY
     Route: 048
     Dates: start: 20090319, end: 20090329
  2. STOCRIN [Concomitant]
  3. BERLOCID [Concomitant]
     Dosage: 2TAB TWICE PER DAY
     Dates: start: 20090304, end: 20090325
  4. BERLOCID [Concomitant]
     Dosage: 1TAB PER DAY

REACTIONS (4)
  - DIZZINESS [None]
  - LARYNGEAL OEDEMA [None]
  - PYREXIA [None]
  - RASH [None]
